FAERS Safety Report 5144523-9 (Version None)
Quarter: 2006Q4

REPORT INFORMATION
  Report Type: 
  Country: None (occurrence: None)
  Receive Date: 20061030
  Receipt Date: 20061019
  Transmission Date: 20070319
  Serious: Yes (Disabling, Other)
  Sender: FDA-Public Use
  Company Number: 2006129015

PATIENT
  Age: 79 Year
  Sex: Female
  Weight: 83.9154 kg

DRUGS (5)
  1. LIPITOR [Suspect]
     Indication: BLOOD CHOLESTEROL INCREASED
     Dosage: 10 MG (10 MG, 1 IN 1 D)
     Dates: start: 20000101
  2. LIPITOR [Suspect]
     Indication: BLOOD TRIGLYCERIDES INCREASED
     Dosage: 10 MG (10 MG, 1 IN 1 D)
     Dates: start: 20000101
  3. ASPIRIN [Concomitant]
  4. HYDROCHLOROTHIAZIDE [Concomitant]
  5. POTASSIUM              (POTASSIUM) [Concomitant]

REACTIONS (3)
  - ASTHENIA [None]
  - ILL-DEFINED DISORDER [None]
  - MALAISE [None]
